FAERS Safety Report 25183642 (Version 1)
Quarter: 2025Q2

REPORT INFORMATION
  Report Type: Spontaneous
  Country: US (occurrence: US)
  Receive Date: 20250410
  Receipt Date: 20250410
  Transmission Date: 20250717
  Serious: Yes (Hospitalization)
  Sender: NOVARTIS
  Company Number: US-002147023-NVSC2025US058864

PATIENT
  Age: 70 Year
  Sex: Female

DRUGS (10)
  1. CYCLOSPORINE [Suspect]
     Active Substance: CYCLOSPORINE
     Indication: Immunosuppressant drug therapy
     Route: 065
  2. LINEZOLID [Suspect]
     Active Substance: LINEZOLID
     Indication: Enterococcal bacteraemia
     Route: 065
  3. PROPOFOL [Suspect]
     Active Substance: PROPOFOL
     Indication: Sedative therapy
     Route: 065
  4. DEXMEDETOMIDINE [Suspect]
     Active Substance: DEXMEDETOMIDINE
     Indication: Sedative therapy
     Route: 065
  5. MYCOPHENOLIC ACID [Suspect]
     Active Substance: MYCOPHENOLIC ACID
     Indication: Immunosuppressant drug therapy
     Route: 065
  6. HALOPERIDOL [Concomitant]
     Active Substance: HALOPERIDOL
     Indication: Agitation
     Route: 042
  7. HALOPERIDOL [Concomitant]
     Active Substance: HALOPERIDOL
     Indication: Anxiety
  8. QUETIAPINE [Concomitant]
     Active Substance: QUETIAPINE
     Indication: Agitation
     Route: 048
  9. QUETIAPINE [Concomitant]
     Active Substance: QUETIAPINE
     Indication: Anxiety
  10. THIAMINE [Concomitant]
     Active Substance: THIAMINE
     Indication: Product used for unknown indication
     Dosage: 500 MG, TID (HIGH-DOSE FOR 5 DAYS)
     Route: 042

REACTIONS (1)
  - Myoclonus [Recovered/Resolved]
